FAERS Safety Report 17723684 (Version 8)
Quarter: 2021Q1

REPORT INFORMATION
  Report Type: Spontaneous
  Country: US (occurrence: US)
  Receive Date: 20200429
  Receipt Date: 20210104
  Transmission Date: 20210419
  Serious: Yes (Hospitalization, Other)
  Sender: FDA-Public Use
  Company Number: US-SA-2020SA110477

PATIENT

DRUGS (2)
  1. DUPIXENT [Suspect]
     Active Substance: DUPILUMAB
     Indication: ASTHMA
     Dosage: 300 MG, QOW
     Route: 058
     Dates: start: 202003, end: 2020
  2. DUPIXENT [Suspect]
     Active Substance: DUPILUMAB
     Indication: ILL-DEFINED DISORDER
     Dosage: 300 MG, QOW
     Route: 058
     Dates: start: 2020

REACTIONS (12)
  - Hospitalisation [Recovering/Resolving]
  - Blood pressure increased [Unknown]
  - Injection site mass [Not Recovered/Not Resolved]
  - Device malfunction [Not Recovered/Not Resolved]
  - Cough [Not Recovered/Not Resolved]
  - Breast cancer [Unknown]
  - Lethargy [Unknown]
  - Injection site pain [Unknown]
  - Oedema peripheral [Unknown]
  - Surgery [Unknown]
  - Incorrect dose administered by device [Unknown]
  - Asthma [Not Recovered/Not Resolved]

NARRATIVE: CASE EVENT DATE: 2020
